FAERS Safety Report 6019540-7 (Version None)
Quarter: 2008Q4

REPORT INFORMATION
  Report Type: 
  Country: None (occurrence: None)
  Receive Date: 20081224
  Receipt Date: 20081219
  Transmission Date: 20090506
  Serious: Yes (Other)
  Sender: FDA-Public Use
  Company Number: FR-BRISTOL-MYERS SQUIBB COMPANY-14413280

PATIENT
  Age: 61 Year
  Sex: Female
  Weight: 53 kg

DRUGS (1)
  1. KENACORT [Suspect]
     Dosage: RECEIVED SECOND INJ DILUTED AT 50% ON 26-JUN-2007
     Dates: start: 20070529

REACTIONS (8)
  - ALOPECIA [None]
  - ERYTHEMA [None]
  - FACIAL PAIN [None]
  - FATIGUE [None]
  - GASTRITIS EROSIVE [None]
  - INJECTION SITE ATROPHY [None]
  - MUSCULAR WEAKNESS [None]
  - ONYCHOCLASIS [None]
